FAERS Safety Report 10227604 (Version 1)
Quarter: 2014Q2

REPORT INFORMATION
  Report Type: Spontaneous
  Country: GB (occurrence: GB)
  Receive Date: 20140610
  Receipt Date: 20140610
  Transmission Date: 20141212
  Serious: Yes (Hospitalization)
  Sender: FDA-Public Use
  Company Number: GB-009507513-1406GBR003573

PATIENT
  Age: 72 Year
  Sex: Female

DRUGS (2)
  1. ALENDRONATE SODIUM [Suspect]
     Dosage: TAKING ALENDRONATE FOR 12 YEARS.
     Route: 065
  2. CORTICOSTEROIDS (UNSPECIFIED) [Concomitant]
     Dosage: LONG TERM.

REACTIONS (1)
  - Femur fracture [Recovering/Resolving]
